FAERS Safety Report 10543544 (Version 1)
Quarter: 2014Q4

REPORT INFORMATION
  Report Type: Spontaneous
  Country: HU (occurrence: HU)
  Receive Date: 20141027
  Receipt Date: 20141027
  Transmission Date: 20150529
  Serious: Yes (Other)
  Sender: FDA-Public Use
  Company Number: HU-ACTAVIS-2014-22576

PATIENT
  Sex: Male

DRUGS (2)
  1. LEVOXA [Suspect]
     Active Substance: LEVOFLOXACIN
     Indication: ORCHITIS
     Route: 065
  2. LEVOXA [Suspect]
     Active Substance: LEVOFLOXACIN
     Indication: EPIDIDYMITIS

REACTIONS (8)
  - Libido decreased [Unknown]
  - Drug ineffective [Unknown]
  - Erectile dysfunction [Unknown]
  - Proctalgia [Unknown]
  - Pain in extremity [Unknown]
  - Urethral pain [Unknown]
  - Testicular pain [Unknown]
  - Organic erectile dysfunction [Unknown]
